FAERS Safety Report 23718418 (Version 1)
Quarter: 2024Q2

REPORT INFORMATION
  Report Type: Spontaneous
  Country: US (occurrence: US)
  Receive Date: 20240408
  Receipt Date: 20240408
  Transmission Date: 20240715
  Serious: Yes (Other)
  Sender: FDA-Public Use
  Company Number: US-PFIZER INC-202400079816

PATIENT
  Age: 52 Year
  Sex: Female

DRUGS (28)
  1. XELJANZ [Suspect]
     Active Substance: TOFACITINIB CITRATE
     Indication: Rheumatoid arthritis
     Dosage: 5 MG 1 TABLET TWICE DAILY
     Dates: start: 201302
  2. MIDODRINE [Concomitant]
     Active Substance: MIDODRINE
  3. LAMICTAL [Concomitant]
     Active Substance: LAMOTRIGINE
  4. PANTOPRAZOLE [Concomitant]
     Active Substance: PANTOPRAZOLE
  5. AIMOVIG [Concomitant]
     Active Substance: ERENUMAB-AOOE
  6. FUROSEMIDE [Concomitant]
     Active Substance: FUROSEMIDE
  7. NURTEC ODT [Concomitant]
     Active Substance: RIMEGEPANT SULFATE
  8. DULERA [Concomitant]
     Active Substance: FORMOTEROL FUMARATE DIHYDRATE\MOMETASONE FUROATE
  9. PULMOZYME [Concomitant]
     Active Substance: DORNASE ALFA
  10. BOTOX [Concomitant]
     Active Substance: ONABOTULINUMTOXINA
  11. CELEBREX [Concomitant]
     Active Substance: CELECOXIB
  12. DIFLUCAN [Concomitant]
     Active Substance: FLUCONAZOLE
  13. ZADITOR [Concomitant]
     Active Substance: KETOTIFEN FUMARATE
  14. LYRICA [Concomitant]
     Active Substance: PREGABALIN
  15. SYNTHROID [Concomitant]
     Active Substance: LEVOTHYROXINE SODIUM
  16. ARAVA [Concomitant]
     Active Substance: LEFLUNOMIDE
  17. KETOROLAC [Concomitant]
     Active Substance: KETOROLAC TROMETHAMINE
  18. LEVALBUTEROL [Concomitant]
     Active Substance: LEVALBUTEROL
  19. ADVAIR HFA [Concomitant]
     Active Substance: FLUTICASONE PROPIONATE\SALMETEROL XINAFOATE
  20. SPIRIVA [Concomitant]
     Active Substance: TIOTROPIUM BROMIDE MONOHYDRATE
  21. GUAIFENESIN [Concomitant]
     Active Substance: GUAIFENESIN
  22. PRIVIGEN [Concomitant]
     Active Substance: HUMAN IMMUNOGLOBULIN G
  23. EPIPEN [Concomitant]
     Active Substance: EPINEPHRINE
  24. LEVOCARNITINE [Concomitant]
     Active Substance: LEVOCARNITINE
  25. HYDROXYCHLOROQUINE DIPHOSPHATE [Concomitant]
     Active Substance: HYDROXYCHLOROQUINE DIPHOSPHATE
  26. DELSYM [Concomitant]
     Active Substance: DEXTROMETHORPHAN
  27. DEXILANT [Concomitant]
     Active Substance: DEXLANSOPRAZOLE
  28. TOPROL XL [Concomitant]
     Active Substance: METOPROLOL SUCCINATE

REACTIONS (2)
  - Immunodeficiency [Unknown]
  - Respiratory tract infection [Recovered/Resolved]

NARRATIVE: CASE EVENT DATE: 20240301
